FAERS Safety Report 6164678-7 (Version None)
Quarter: 2009Q2

REPORT INFORMATION
  Report Type: 
  Country: None (occurrence: None)
  Receive Date: 20090423
  Receipt Date: 20090417
  Transmission Date: 20091009
  Serious: Yes (Death)
  Sender: FDA-Public Use
  Company Number: HK-ROCHE-628285

PATIENT
  Age: 61 Year
  Sex: Male

DRUGS (2)
  1. PEG-INTERFERON ALFA 2A (RO 25-8310) [Suspect]
     Route: 058
     Dates: start: 20090114
  2. RIBAVIRIN [Suspect]
     Route: 048
     Dates: start: 20090114

REACTIONS (1)
  - VARICES OESOPHAGEAL [None]
